FAERS Safety Report 9268214 (Version 1)
Quarter: 2013Q2

REPORT INFORMATION
  Report Type: Spontaneous
  Country: US (occurrence: US)
  Receive Date: 20130502
  Receipt Date: 20130502
  Transmission Date: 20140414
  Serious: Yes (Hospitalization)
  Sender: FDA-Public Use
  Company Number: US-ALEXION-A201201793

PATIENT
  Age: 47 Year
  Sex: Male
  Weight: 78.4 kg

DRUGS (4)
  1. SOLIRIS 300MG [Suspect]
     Indication: PAROXYSMAL NOCTURNAL HAEMOGLOBINURIA
     Dosage: 900 MG, Q2W
     Route: 042
  2. COUMADIN [Concomitant]
     Dosage: 5 MG, UNK
     Route: 048
  3. MUCINEX [Concomitant]
     Dosage: UNK, BID PRN
     Route: 048
  4. FOLIC ACID [Concomitant]
     Dosage: 1 MG, QD
     Route: 048

REACTIONS (4)
  - Hydronephrosis [Recovered/Resolved]
  - Haematuria [Recovered/Resolved]
  - Blood creatinine increased [Recovered/Resolved]
  - Infection [Recovered/Resolved]
